FAERS Safety Report 9232126 (Version 1)
Quarter: 2013Q2

REPORT INFORMATION
  Report Type: Spontaneous
  Country: US (occurrence: US)
  Receive Date: 20130415
  Receipt Date: 20130415
  Transmission Date: 20140414
  Serious: No
  Sender: FDA-Public Use
  Company Number: US-PFIZER INC-2013113250

PATIENT
  Age: 6 Decade
  Sex: Female
  Weight: 61.22 kg

DRUGS (1)
  1. EFFEXOR XR [Suspect]
     Dosage: 75 MG DAILY
     Dates: start: 201208

REACTIONS (1)
  - Drug screen false positive [Unknown]
